FAERS Safety Report 9200896 (Version 2)
Quarter: 2014Q1

REPORT INFORMATION
  Report Type: Spontaneous
  Country: US (occurrence: US)
  Receive Date: 20130401
  Receipt Date: 20140304
  Transmission Date: 20141002
  Serious: Yes (Hospitalization)
  Sender: FDA-Public Use
  Company Number: US-BAYER-2013-039123

PATIENT
  Age: 27 Year
  Sex: Female
  Weight: 58.96 kg

DRUGS (6)
  1. MIRENA [Suspect]
     Indication: CONTRACEPTION
     Dosage: 20 MCG/24HR, CONT
     Route: 015
     Dates: start: 20090513, end: 20120429
  2. COPAXONE [Concomitant]
     Dosage: 20 MG, UNK
     Route: 058
  3. METRONIDAZOLE [Concomitant]
     Indication: BACTERIAL VAGINOSIS
  4. AZITHROMYCIN [Concomitant]
     Indication: INFECTION
  5. DOXYCYCLINE HYCLATE [Concomitant]
     Indication: INFECTION
  6. AVIANE [Concomitant]

REACTIONS (4)
  - Uterine perforation [None]
  - Injury [None]
  - Pain [None]
  - Emotional distress [None]
